FAERS Safety Report 6395824-8 (Version None)
Quarter: 2009Q4

REPORT INFORMATION
  Report Type: 
  Country: None (occurrence: None)
  Receive Date: 20091009
  Receipt Date: 20060624
  Transmission Date: 20100525
  Serious: No
  Sender: FDA-Public Use
  Company Number: A0793519A

PATIENT
  Sex: Female

DRUGS (2)
  1. TYKERB [Suspect]
     Indication: BREAST CANCER
  2. MEGACE [Concomitant]

REACTIONS (1)
  - CREATININE RENAL CLEARANCE INCREASED [None]
